FAERS Safety Report 18618035 (Version 3)
Quarter: 2021Q1

REPORT INFORMATION
  Report Type: Report from Study
  Country: CA (occurrence: CA)
  Receive Date: 20201215
  Receipt Date: 20210223
  Transmission Date: 20210419
  Serious: Yes (Hospitalization)
  Sender: FDA-Public Use
  Company Number: CA-JNJFOC-20200912550

PATIENT
  Age: 53 Year
  Sex: Female

DRUGS (4)
  1. TYLENOL [Suspect]
     Active Substance: ACETAMINOPHEN
     Indication: PAIN
     Route: 065
  2. REMICADE [Suspect]
     Active Substance: INFLIXIMAB
     Dosage: ALSO REPORTED AS 4 WEEKS
     Route: 042
     Dates: end: 20201224
  3. CODEINE [Suspect]
     Active Substance: CODEINE
     Indication: PRODUCT USED FOR UNKNOWN INDICATION
     Route: 065
  4. REMICADE [Suspect]
     Active Substance: INFLIXIMAB
     Indication: CROHN^S DISEASE
     Dosage: FOR BATCH NUMBER KDM51024, EXPIRY: 31?MAR?2023 AND KGM66012 EXPIRY 30?JUN?2023
     Route: 042
     Dates: start: 20170309

REACTIONS (5)
  - Breast cancer stage IV [Unknown]
  - Muscular weakness [Unknown]
  - Metastases to spine [Unknown]
  - Spinal osteoarthritis [Not Recovered/Not Resolved]
  - Constipation [Recovering/Resolving]

NARRATIVE: CASE EVENT DATE: 20200715
